FAERS Safety Report 13178063 (Version 1)
Quarter: 2017Q1

REPORT INFORMATION
  Report Type: Report from Study
  Country: DE (occurrence: DE)
  Receive Date: 20170202
  Receipt Date: 20170202
  Transmission Date: 20170428
  Serious: Yes (Other)
  Sender: FDA-Public Use
  Company Number: DE-ROCHE-1883190

PATIENT
  Sex: Female
  Weight: 51 kg

DRUGS (16)
  1. RANIBIZUMAB [Suspect]
     Active Substance: RANIBIZUMAB
     Dosage: 0.5 MG, VIAL, LEFT EYE
     Route: 031
     Dates: start: 20151016
  2. RANIBIZUMAB [Suspect]
     Active Substance: RANIBIZUMAB
     Dosage: 0.5 MG, VIAL, RIGTH EYE
     Route: 031
     Dates: start: 20151109
  3. RANIBIZUMAB [Suspect]
     Active Substance: RANIBIZUMAB
     Dosage: 0.5 MG, VIAL, LEFT EYE
     Route: 031
     Dates: start: 20160118
  4. RANIBIZUMAB [Suspect]
     Active Substance: RANIBIZUMAB
     Dosage: 0.5 MG, VIAL, RIGHT EYE
     Route: 031
     Dates: start: 20160411
  5. RANIBIZUMAB [Suspect]
     Active Substance: RANIBIZUMAB
     Dosage: 0.5 MG, VIAL, LEFT EYE
     Route: 031
     Dates: start: 20160711
  6. RANIBIZUMAB [Suspect]
     Active Substance: RANIBIZUMAB
     Dosage: 0.5 MG, VIAL, LEFT EYE
     Route: 031
     Dates: start: 20160912
  7. RANIBIZUMAB [Suspect]
     Active Substance: RANIBIZUMAB
     Dosage: 0.5 MG, VIAL, RIGHT EYE
     Route: 031
     Dates: start: 20160919, end: 20160919
  8. RANIBIZUMAB [Suspect]
     Active Substance: RANIBIZUMAB
     Dosage: 0.5 MG, VIAL, RIGHT EYE
     Route: 031
     Dates: start: 20160523
  9. RANIBIZUMAB [Suspect]
     Active Substance: RANIBIZUMAB
     Dosage: 0.5 MG, VIAL, RIGHT EYE
     Route: 031
     Dates: start: 20151207
  10. RANIBIZUMAB [Suspect]
     Active Substance: RANIBIZUMAB
     Dosage: 0.5 MG, VIAL, RIGHT EYE
     Route: 031
     Dates: start: 20160725
  11. RANIBIZUMAB [Suspect]
     Active Substance: RANIBIZUMAB
     Indication: NEOVASCULAR AGE-RELATED MACULAR DEGENERATION
     Dosage: 0.5 MG, PREFILLED SYRINGE, LEFT EYE
     Route: 031
     Dates: start: 20150907
  12. RANIBIZUMAB [Suspect]
     Active Substance: RANIBIZUMAB
     Dosage: 0.5 MG, VIAL, RIGHT EYE
     Route: 031
     Dates: start: 20151012
  13. RANIBIZUMAB [Suspect]
     Active Substance: RANIBIZUMAB
     Dosage: 0.5 MG, VIAL, LEFT EYE
     Route: 031
     Dates: start: 20151218
  14. RANIBIZUMAB [Suspect]
     Active Substance: RANIBIZUMAB
     Dosage: 0.5 MG, VIAL, LEFT EYE
     Route: 031
     Dates: start: 20151116
  15. RANIBIZUMAB [Suspect]
     Active Substance: RANIBIZUMAB
     Dosage: 0.5 MG, VIAL, RIGHT EYE
     Route: 031
     Dates: start: 20160111
  16. RANIBIZUMAB [Suspect]
     Active Substance: RANIBIZUMAB
     Dosage: 0.5 MG, VIAL, LEFT EYE
     Route: 031
     Dates: start: 20160418

REACTIONS (1)
  - Cerebrovascular accident [Unknown]

NARRATIVE: CASE EVENT DATE: 20161025
